FAERS Safety Report 5181062-3 (Version None)
Quarter: 2006Q4

REPORT INFORMATION
  Report Type: 
  Country: None (occurrence: None)
  Receive Date: 20061220
  Receipt Date: 20061206
  Transmission Date: 20070319
  Serious: Yes (Life-Threatening, Hospitalization, Disabling)
  Sender: FDA-Public Use
  Company Number: PHFR2006GB03587

PATIENT
  Age: 39 Year
  Sex: Male
  Weight: 79 kg

DRUGS (2)
  1. CLOZAPINE [Suspect]
     Indication: SCHIZOPHRENIA
     Dosage: 400 MG, QD
     Route: 048
     Dates: start: 20020101
  2. CITALOPRAM (NGX) [Suspect]
     Indication: DEPRESSION
     Dosage: 40 MG/DAY
     Route: 048

REACTIONS (3)
  - DIABETES MELLITUS INSULIN-DEPENDENT [None]
  - DIABETIC KETOACIDOSIS [None]
  - HYPOKALAEMIA [None]
